FAERS Safety Report 4525791-0 (Version None)
Quarter: 2004Q4

REPORT INFORMATION
  Report Type: 
  Country: None (occurrence: None)
  Receive Date: 20041116
  Receipt Date: 20040908
  Transmission Date: 20050328
  Serious: Yes (Hospitalization)
  Sender: FDA-Public Use
  Company Number: S04-USA-06122-01

PATIENT
  Sex: Female

DRUGS (1)
  1. NAMENDA [Suspect]

REACTIONS (1)
  - HYPONATRAEMIA [None]
